FAERS Safety Report 7612148-9 (Version None)
Quarter: 2011Q3

REPORT INFORMATION
  Report Type: 
  Country: None (occurrence: None)
  Receive Date: 20110715
  Receipt Date: 20110712
  Transmission Date: 20111222
  Serious: Yes (Death, Hospitalization)
  Sender: FDA-Public Use
  Company Number: CZ-ABBOTT-11P-217-0838586-00

PATIENT
  Age: 50 Year
  Sex: Female
  Weight: 70 kg

DRUGS (3)
  1. LEXAURIN [Suspect]
     Indication: PRODUCT USED FOR UNKNOWN INDICATION
  2. TARKA [Suspect]
     Indication: PRODUCT USED FOR UNKNOWN INDICATION
  3. IBALGIN [Suspect]
     Indication: PRODUCT USED FOR UNKNOWN INDICATION

REACTIONS (3)
  - TOXICITY TO VARIOUS AGENTS [None]
  - COMPLETED SUICIDE [None]
  - CARDIAC ARREST [None]
